FAERS Safety Report 10452438 (Version 2)
Quarter: 2014Q3

REPORT INFORMATION
  Report Type: Spontaneous
  Country: AU (occurrence: AU)
  Receive Date: 20140915
  Receipt Date: 20140915
  Transmission Date: 20150326
  Serious: Yes (Death, Hospitalization, Disabling, Other)
  Sender: FDA-Public Use
  Company Number: AU-AMGEN-AUSSP2014032385

PATIENT
  Age: 82 Year
  Sex: Male

DRUGS (5)
  1. XGEVA [Suspect]
     Active Substance: DENOSUMAB
     Indication: METASTASES TO BONE
  2. WARFARIN [Concomitant]
     Active Substance: WARFARIN
     Indication: AORTIC VALVE REPLACEMENT
  3. STEMETIL                           /00013301/ [Concomitant]
     Indication: DIZZINESS
  4. ZOLADEX [Concomitant]
     Active Substance: GOSERELIN ACETATE
     Dosage: UNK UNK, Q3MO
  5. XGEVA [Suspect]
     Active Substance: DENOSUMAB
     Indication: PROSTATE CANCER METASTATIC
     Dosage: 120 MG, Q4WK
     Route: 058
     Dates: start: 20130605

REACTIONS (9)
  - Pain [Fatal]
  - Asthenia [Unknown]
  - Cardiac valve disease [Fatal]
  - Sepsis [Fatal]
  - Back pain [Not Recovered/Not Resolved]
  - Metastases to lung [Fatal]
  - Hernia [Recovering/Resolving]
  - Procedural pain [Unknown]
  - Blood count abnormal [Not Recovered/Not Resolved]

NARRATIVE: CASE EVENT DATE: 201404
